FAERS Safety Report 20890983 (Version 2)
Quarter: 2022Q4

REPORT INFORMATION
  Report Type: Report from Study
  Country: JP (occurrence: JP)
  Receive Date: 20220530
  Receipt Date: 20221018
  Transmission Date: 20230113
  Serious: Yes (Hospitalization, Other)
  Sender: FDA-Public Use
  Company Number: JP-ASTELLAS-2021JP024417

PATIENT
  Age: 78 Year
  Sex: Male
  Weight: 64 kg

DRUGS (6)
  1. ENFORTUMAB VEDOTIN [Suspect]
     Active Substance: ENFORTUMAB VEDOTIN
     Indication: Bladder cancer
     Route: 041
     Dates: start: 20211201, end: 20211217
  2. ENFORTUMAB VEDOTIN [Suspect]
     Active Substance: ENFORTUMAB VEDOTIN
     Route: 041
     Dates: start: 20220209, end: 20220224
  3. FILGRASTIM RECOMBINANT [Concomitant]
     Indication: Leukopenia
     Route: 065
     Dates: start: 20211215, end: 20211224
  4. FILGRASTIM RECOMBINANT [Concomitant]
     Route: 065
     Dates: start: 20220222, end: 20220224
  5. FILGRASTIM RECOMBINANT [Concomitant]
     Route: 065
     Dates: start: 20220301, end: 20220308
  6. FILGRASTIM RECOMBINANT [Concomitant]
     Route: 065
     Dates: start: 20220314, end: 20220315

REACTIONS (10)
  - Leukopenia [Recovering/Resolving]
  - Leukopenia [Recovering/Resolving]
  - Leukopenia [Recovering/Resolving]
  - Leukopenia [Unknown]
  - Thrombocytopenia [Recovering/Resolving]
  - Thrombocytopenia [Recovering/Resolving]
  - Thrombocytopenia [Recovering/Resolving]
  - Thrombocytopenia [Recovering/Resolving]
  - Thrombocytopenia [Recovering/Resolving]
  - Thrombocytopenia [Unknown]

NARRATIVE: CASE EVENT DATE: 20211213
